FAERS Safety Report 6342906-2 (Version None)
Quarter: 2009Q3

REPORT INFORMATION
  Report Type: 
  Country: None (occurrence: None)
  Receive Date: 20090908
  Receipt Date: 20090828
  Transmission Date: 20100115
  Serious: Yes (Other)
  Sender: FDA-Public Use
  Company Number: SE-JNJFOC-20090809532

PATIENT
  Age: 75 Year
  Sex: Female

DRUGS (7)
  1. REMICADE [Suspect]
     Indication: RHEUMATOID ARTHRITIS
     Route: 042
  2. CALCIUM [Concomitant]
  3. FOLACIN [Concomitant]
  4. PREDNISOLONE [Concomitant]
  5. METHOTREXATE [Concomitant]
  6. KETOPROFEN [Concomitant]
  7. PARACETAMOL [Concomitant]

REACTIONS (2)
  - CARDITIS [None]
  - SEPSIS [None]
